FAERS Safety Report 6898186-2 (Version None)
Quarter: 2010Q3

REPORT INFORMATION
  Report Type: 
  Country: None (occurrence: None)
  Receive Date: 20100802
  Receipt Date: 20070917
  Transmission Date: 20110219
  Serious: No
  Sender: FDA-Public Use
  Company Number: US-PFIZER INC-2007078416

PATIENT
  Sex: Female
  Weight: 74.4 kg

DRUGS (5)
  1. LYRICA [Suspect]
     Indication: NEURALGIA
     Dates: start: 20070912
  2. OXYCODONE HCL [Interacting]
     Indication: NEURALGIA
     Dates: end: 20070912
  3. AVAPRO [Concomitant]
  4. HYDROCHLOROTHIAZIDE [Concomitant]
  5. DICLOFENAC [Concomitant]

REACTIONS (2)
  - DRUG INTERACTION [None]
  - SEDATION [None]
